FAERS Safety Report 6185769-0 (Version None)
Quarter: 2009Q2

REPORT INFORMATION
  Report Type: 
  Country: None (occurrence: None)
  Receive Date: 20090507
  Receipt Date: 20090423
  Transmission Date: 20091009
  Serious: Yes (Life-Threatening, Hospitalization)
  Sender: FDA-Public Use
  Company Number: POMP-10769

PATIENT
  Age: 17 Month
  Sex: Female
  Weight: 10 kg

DRUGS (1)
  1. MYOZYME [Suspect]
     Indication: GLYCOGEN STORAGE DISEASE TYPE II
     Dosage: 20 MG/KG, Q2W, INTRAVENOUS
     Route: 042
     Dates: start: 20051104

REACTIONS (18)
  - ACUTE RESPIRATORY DISTRESS SYNDROME [None]
  - ATELECTASIS [None]
  - BACTERIAL TRACHEITIS [None]
  - CARDIAC MURMUR [None]
  - DISEASE PROGRESSION [None]
  - HYPERHIDROSIS [None]
  - HYPOTENSION [None]
  - KLEBSIELLA INFECTION [None]
  - LEFT VENTRICLE OUTFLOW TRACT OBSTRUCTION [None]
  - LEFT VENTRICULAR DYSFUNCTION [None]
  - LISTLESS [None]
  - PNEUMONIA RESPIRATORY SYNCYTIAL VIRAL [None]
  - PULMONARY ARTERIAL WEDGE PRESSURE DECREASED [None]
  - RESPIRATORY FAILURE [None]
  - SPEECH DISORDER [None]
  - TACHYCARDIA [None]
  - VOMITING [None]
  - WHEELCHAIR USER [None]
